FAERS Safety Report 17645802 (Version 2)
Quarter: 2021Q2

REPORT INFORMATION
  Report Type: Report from Study
  Country: DE (occurrence: DE)
  Receive Date: 20200408
  Receipt Date: 20210507
  Transmission Date: 20210716
  Serious: Yes (Other)
  Sender: FDA-Public Use
  Company Number: DE-BIOGEN-2020BI00858286

PATIENT
  Sex: Female
  Weight: 75 kg

DRUGS (5)
  1. AVONEX PEN [Suspect]
     Active Substance: INTERFERON BETA-1A
  2. FEMIBION [Concomitant]
     Indication: PREGNANCY
     Route: 048
     Dates: start: 20190201, end: 20190930
  3. AVONEX PEN [Suspect]
     Active Substance: INTERFERON BETA-1A
     Indication: MULTIPLE SCLEROSIS
     Route: 030
     Dates: start: 20150501, end: 201901
  4. AVONEX PEN [Suspect]
     Active Substance: INTERFERON BETA-1A
  5. AVONEX PEN [Suspect]
     Active Substance: INTERFERON BETA-1A

REACTIONS (4)
  - Cephalo-pelvic disproportion [Recovered/Resolved]
  - Hypertension [Not Recovered/Not Resolved]
  - Foetal malposition [Recovered/Resolved]
  - Gestational diabetes [Recovered/Resolved]
